FAERS Safety Report 21546022 (Version 1)
Quarter: 2022Q4

REPORT INFORMATION
  Report Type: Report from Study
  Country: US (occurrence: US)
  Receive Date: 20221103
  Receipt Date: 20221103
  Transmission Date: 20230113
  Serious: No
  Sender: FDA-Public Use
  Company Number: US-ABBVIE-4149974

PATIENT
  Sex: Male

DRUGS (1)
  1. HUMIRA [Suspect]
     Active Substance: ADALIMUMAB
     Indication: Psoriatic arthropathy
     Route: 058

REACTIONS (5)
  - Rash pruritic [Not Recovered/Not Resolved]
  - Therapeutic response shortened [Recovering/Resolving]
  - Rash macular [Not Recovered/Not Resolved]
  - Psoriatic arthropathy [Recovering/Resolving]
  - Scab [Unknown]
